FAERS Safety Report 6989777-9 (Version None)
Quarter: 2010Q3

REPORT INFORMATION
  Report Type: 
  Country: None (occurrence: None)
  Receive Date: 20100916
  Receipt Date: 20100219
  Transmission Date: 20110219
  Serious: Yes (Other)
  Sender: FDA-Public Use
  Company Number: US-PFIZER INC-2010025134

PATIENT
  Sex: Female
  Weight: 81.633 kg

DRUGS (10)
  1. LYRICA [Suspect]
     Indication: DIABETIC NEUROPATHY
     Dosage: 150 MG, 2X/DAY
  2. LYRICA [Suspect]
     Dosage: 50 MG, 2X/DAY
     Dates: start: 20090901
  3. CYCLOBENZAPRINE [Concomitant]
     Dosage: UNK
  4. ALPRAZOLAM [Concomitant]
     Dosage: UNK
  5. EFFEXOR XR [Concomitant]
     Dosage: UNK
  6. METHYLFOLATE [Concomitant]
     Dosage: UNK
  7. GLIPIZIDE [Concomitant]
     Dosage: UNK
  8. ACTOS [Concomitant]
     Dosage: UNK
  9. TEMAZEPAM [Concomitant]
     Dosage: UNK
  10. SITAGLIPTIN [Concomitant]
     Dosage: UNK

REACTIONS (8)
  - CONSTIPATION [None]
  - FALL [None]
  - HYPOAESTHESIA [None]
  - MUSCLE SPASMS [None]
  - MUSCULAR WEAKNESS [None]
  - SKELETAL INJURY [None]
  - TENSION [None]
  - WEIGHT ABNORMAL [None]
